FAERS Safety Report 16650643 (Version 10)
Quarter: 2023Q2

REPORT INFORMATION
  Report Type: Report from Study
  Country: BR (occurrence: BR)
  Receive Date: 20190731
  Receipt Date: 20230525
  Transmission Date: 20230721
  Serious: Yes (Hospitalization, Other)
  Sender: FDA-Public Use
  Company Number: BR-BIOGEN-2019BI00768032

PATIENT
  Sex: Female
  Weight: 58 kg

DRUGS (17)
  1. AVONEX PEN [Suspect]
     Active Substance: INTERFERON BETA-1A
     Indication: Multiple sclerosis
     Route: 050
     Dates: start: 2010
  2. AVONEX PEN [Suspect]
     Active Substance: INTERFERON BETA-1A
     Route: 050
     Dates: start: 20130326, end: 20140815
  3. AVONEX PEN [Suspect]
     Active Substance: INTERFERON BETA-1A
  4. AVONEX PEN [Suspect]
     Active Substance: INTERFERON BETA-1A
  5. RANITIDINE HYDROCHLORIDE [Concomitant]
     Active Substance: RANITIDINE HYDROCHLORIDE
     Indication: Product used for unknown indication
     Route: 050
  6. ALLEGRA [Concomitant]
     Active Substance: FEXOFENADINE HYDROCHLORIDE
     Indication: Product used for unknown indication
     Route: 050
  7. CARBAMAZEPINE [Concomitant]
     Active Substance: CARBAMAZEPINE
     Indication: Pain
     Route: 050
     Dates: start: 2010
  8. FLUOXETINE [Concomitant]
     Active Substance: FLUOXETINE HYDROCHLORIDE
     Indication: Insomnia
     Route: 050
     Dates: start: 2016
  9. FLUOXETINE [Concomitant]
     Active Substance: FLUOXETINE HYDROCHLORIDE
     Dosage: 2 TABLETS
     Route: 050
     Dates: start: 2010
  10. RIVOTRIL [Concomitant]
     Active Substance: CLONAZEPAM
     Indication: Insomnia
     Route: 050
  11. CAFFEINE\DIPYRONE\ORPHENADRINE [Concomitant]
     Active Substance: CAFFEINE\DIPYRONE\ORPHENADRINE
     Indication: Headache
     Route: 050
  12. VITAMIN E [Concomitant]
     Active Substance: .ALPHA.-TOCOPHEROL
     Indication: Product used for unknown indication
     Route: 050
  13. VITAMIN D [Concomitant]
     Active Substance: VITAMIN D NOS
     Indication: Product used for unknown indication
     Route: 050
  14. LORATADINE [Concomitant]
     Active Substance: LORATADINE
     Indication: Product used for unknown indication
     Route: 050
     Dates: start: 20230414, end: 20230414
  15. LOSARTAN [Concomitant]
     Active Substance: LOSARTAN
     Indication: Hypertension
     Route: 050
     Dates: start: 2010
  16. ATENOLOL [Concomitant]
     Active Substance: ATENOLOL
     Indication: Hypertension
     Route: 050
     Dates: start: 2010
  17. CLONAZEPAM [Concomitant]
     Active Substance: CLONAZEPAM
     Indication: Insomnia
     Route: 050
     Dates: start: 2010

REACTIONS (24)
  - Myocardial infarction [Recovered/Resolved with Sequelae]
  - Diplegia [Unknown]
  - Multiple sclerosis relapse [Recovered/Resolved]
  - Swelling [Not Recovered/Not Resolved]
  - Injection site nodule [Recovered/Resolved]
  - Ischaemia [Unknown]
  - Sensory loss [Not Recovered/Not Resolved]
  - Product administered at inappropriate site [Recovered/Resolved]
  - Restless legs syndrome [Not Recovered/Not Resolved]
  - Muscle fatigue [Recovered/Resolved]
  - Cyanosis [Unknown]
  - Coordination abnormal [Unknown]
  - Sensory disturbance [Unknown]
  - Decreased immune responsiveness [Unknown]
  - Limb discomfort [Recovered/Resolved]
  - Mobility decreased [Unknown]
  - Insomnia [Unknown]
  - Pain [Unknown]
  - Pain in extremity [Recovered/Resolved]
  - Chest pain [Unknown]
  - Affect lability [Unknown]
  - Injection site pain [Unknown]
  - Fatigue [Unknown]
  - Alopecia [Not Recovered/Not Resolved]

NARRATIVE: CASE EVENT DATE: 20100101
